FAERS Safety Report 25727227 (Version 2)
Quarter: 2025Q3

REPORT INFORMATION
  Report Type: Spontaneous
  Country: EU (occurrence: EU)
  Receive Date: 20250826
  Receipt Date: 20250902
  Transmission Date: 20251020
  Serious: Yes (Other)
  Sender: PFIZER
  Company Number: EU-PFIZER INC-PV202500102017

PATIENT
  Age: 74 Year
  Sex: Female

DRUGS (2)
  1. PALBOCICLIB [Suspect]
     Active Substance: PALBOCICLIB
     Indication: Breast cancer metastatic
     Dates: start: 202401, end: 202506
  2. LETROZOLE [Concomitant]
     Active Substance: LETROZOLE
     Dates: start: 202401, end: 202506

REACTIONS (2)
  - Second primary malignancy [Unknown]
  - Lymphoma [Unknown]
